FAERS Safety Report 7866187-3 (Version None)
Quarter: 2011Q4

REPORT INFORMATION
  Report Type: 
  Country: None (occurrence: None)
  Receive Date: 20111028
  Receipt Date: 20110509
  Transmission Date: 20120403
  Serious: No
  Sender: FDA-Public Use
  Company Number: US-GLAXOSMITHKLINE-A0926600A

PATIENT
  Age: 83 Year
  Sex: Male

DRUGS (4)
  1. ZOCOR [Concomitant]
  2. TOPROL-XL [Concomitant]
  3. NORVASC [Concomitant]
  4. ADVAIR DISKUS 100/50 [Suspect]
     Indication: CHRONIC OBSTRUCTIVE PULMONARY DISEASE
     Dosage: 1PUFF PER DAY
     Route: 055
     Dates: start: 20090101

REACTIONS (2)
  - WHEEZING [None]
  - PRODUCT QUALITY ISSUE [None]
